FAERS Safety Report 4278339-2 (Version None)
Quarter: 2004Q1

REPORT INFORMATION
  Report Type: 
  Country: None (occurrence: None)
  Receive Date: 20040123
  Receipt Date: 20000225
  Transmission Date: 20041129
  Serious: Yes (Other)
  Sender: FDA-Public Use
  Company Number: CA-ROCHE-230085

PATIENT
  Age: 29 Year
  Sex: Male

DRUGS (1)
  1. TAMIFLU [Suspect]
     Indication: INFLUENZA
     Route: 048
     Dates: start: 20000225, end: 20000225

REACTIONS (3)
  - ANAPHYLACTIC REACTION [None]
  - ERYTHEMA [None]
  - TREMOR [None]
